FAERS Safety Report 4609517-8 (Version None)
Quarter: 2005Q1

REPORT INFORMATION
  Report Type: 
  Country: None (occurrence: None)
  Receive Date: 20050314
  Receipt Date: 20050314
  Transmission Date: 20050727
  Serious: Yes (Hospitalization)
  Sender: FDA-Public Use
  Company Number: None

PATIENT
  Age: 94 Year
  Sex: Female
  Weight: 65.7 kg

DRUGS (2)
  1. ERGOCALCIFEROL 50,000 UNITS [Suspect]
     Dosage: 50,000 UNITS WEEKLY ORAL
     Route: 048
  2. CALCIUM/VITAMIN D 500 MG [Suspect]
     Dosage: 500 MG BID ORAL
     Route: 048

REACTIONS (4)
  - ASTHENIA [None]
  - BLOOD ELECTROLYTES ABNORMAL [None]
  - CONFUSIONAL STATE [None]
  - HYPERCALCAEMIA [None]
